FAERS Safety Report 10949684 (Version 1)
Quarter: 2015Q1

REPORT INFORMATION
  Report Type: Spontaneous
  Country: US (occurrence: None)
  Receive Date: 20150226
  Receipt Date: 20150226
  Transmission Date: 20150721
  Serious: Yes (Hospitalization)
  Sender: FDA-Public Use
  Company Number: TAP2007Q00317

PATIENT
  Age: 70 Year
  Sex: Female
  Weight: 79.5 kg

DRUGS (3)
  1. PREVACID [Suspect]
     Active Substance: LANSOPRAZOLE
     Indication: EROSIVE OESOPHAGITIS
     Route: 048
     Dates: start: 2003, end: 2003
  2. PREVACID [Suspect]
     Active Substance: LANSOPRAZOLE
     Indication: BARRETT^S OESOPHAGUS
     Route: 048
     Dates: start: 2003, end: 2003
  3. LIPITOR [Concomitant]
     Active Substance: ATORVASTATIN CALCIUM

REACTIONS (8)
  - Thinking abnormal [None]
  - Cough [None]
  - Paraesthesia [None]
  - Hypoaesthesia [None]
  - Dizziness [None]
  - Nervousness [None]
  - Tremor [None]
  - Affect lability [None]

NARRATIVE: CASE EVENT DATE: 2003
